FAERS Safety Report 24296550 (Version 2)
Quarter: 2025Q1

REPORT INFORMATION
  Report Type: Spontaneous
  Country: US (occurrence: US)
  Receive Date: 20240909
  Receipt Date: 20250124
  Transmission Date: 20250409
  Serious: Yes (Other)
  Sender: ELI LILLY AND COMPANY
  Company Number: US-ELI_LILLY_AND_COMPANY-US202409003586

PATIENT
  Age: 43 Year
  Sex: Female
  Weight: 81.633 kg

DRUGS (19)
  1. MOUNJARO [Suspect]
     Active Substance: TIRZEPATIDE
     Indication: Polycystic ovarian syndrome
     Dosage: 5 MG, WEEKLY (1/W)
     Route: 065
     Dates: start: 20230831, end: 20230911
  2. MOUNJARO [Suspect]
     Active Substance: TIRZEPATIDE
     Indication: Polycystic ovarian syndrome
     Dosage: 5 MG, WEEKLY (1/W)
     Route: 065
     Dates: start: 20230831, end: 20230911
  3. MOUNJARO [Suspect]
     Active Substance: TIRZEPATIDE
     Indication: Polycystic ovarian syndrome
     Dosage: 5 MG, WEEKLY (1/W)
     Route: 065
     Dates: start: 20230831, end: 20230911
  4. MOUNJARO [Suspect]
     Active Substance: TIRZEPATIDE
     Indication: Polycystic ovarian syndrome
     Dosage: 5 MG, WEEKLY (1/W)
     Route: 065
     Dates: start: 20230831, end: 20230911
  5. OZEMPIC [Suspect]
     Active Substance: SEMAGLUTIDE
     Indication: Polycystic ovarian syndrome
     Dosage: 0.5 MG, WEEKLY (1/W)
     Route: 065
     Dates: start: 20220518, end: 20220816
  6. OZEMPIC [Suspect]
     Active Substance: SEMAGLUTIDE
     Dosage: 1 MG, WEEKLY (1/W)
     Route: 065
     Dates: start: 20220816, end: 20230315
  7. OZEMPIC [Suspect]
     Active Substance: SEMAGLUTIDE
     Dosage: 2 MG, WEEKLY (1/W)
     Route: 065
     Dates: start: 20230315, end: 20230630
  8. RYBELSUS [Suspect]
     Active Substance: SEMAGLUTIDE
     Indication: Polycystic ovarian syndrome
     Dosage: 3 MG, DAILY
     Route: 065
     Dates: start: 20210621, end: 20210812
  9. RYBELSUS [Suspect]
     Active Substance: SEMAGLUTIDE
     Dosage: 7 MG, DAILY
     Route: 065
     Dates: start: 20210812, end: 20220207
  10. WEGOVY [Suspect]
     Active Substance: SEMAGLUTIDE
     Indication: Polycystic ovarian syndrome
     Dosage: 0.25 MG, WEEKLY (1/W)
     Route: 065
     Dates: start: 20230911, end: 20231002
  11. BUSPIRONE [Concomitant]
     Active Substance: BUSPIRONE HYDROCHLORIDE
     Indication: Anxiety
  12. CITALOPRAM [Concomitant]
     Active Substance: CITALOPRAM
     Indication: Anxiety
  13. DEXTROAMPHETAMINE [Concomitant]
     Active Substance: DEXTROAMPHETAMINE
     Indication: Attention deficit hyperactivity disorder
  14. AMPHETAMINE [Concomitant]
     Active Substance: AMPHETAMINE
     Indication: Attention deficit hyperactivity disorder
  15. TRINTELLIX [Concomitant]
     Active Substance: VORTIOXETINE HYDROBROMIDE
     Indication: Depression
  16. NP THYROID [Concomitant]
     Active Substance: LEVOTHYROXINE\LIOTHYRONINE
     Indication: Hormone therapy
  17. SPIRONOLACTONE [Concomitant]
     Active Substance: SPIRONOLACTONE
     Indication: Blood pressure measurement
  18. METFORMIN [Concomitant]
     Active Substance: METFORMIN HYDROCHLORIDE
     Indication: Polycystic ovarian syndrome
  19. CLONAZEPAM [Concomitant]
     Active Substance: CLONAZEPAM
     Indication: Anxiety

REACTIONS (6)
  - Impaired gastric emptying [Not Recovered/Not Resolved]
  - Nausea [Not Recovered/Not Resolved]
  - Vomiting [Not Recovered/Not Resolved]
  - Dehydration [Not Recovered/Not Resolved]
  - Abdominal pain upper [Not Recovered/Not Resolved]
  - Off label use [Unknown]

NARRATIVE: CASE EVENT DATE: 20231002
